FAERS Safety Report 6736558-7 (Version None)
Quarter: 2010Q2

REPORT INFORMATION
  Report Type: 
  Country: None (occurrence: None)
  Receive Date: 20100521
  Receipt Date: 20100512
  Transmission Date: 20101027
  Serious: Yes (Death, Hospitalization, Other)
  Sender: FDA-Public Use
  Company Number: CA-JNJFOC-20091003756

PATIENT
  Age: 63 Year
  Sex: Male
  Weight: 113 kg

DRUGS (4)
  1. REMICADE [Suspect]
     Indication: PSORIASIS
     Route: 042
  2. ARTHROTEC [Concomitant]
  3. DOVOBET [Concomitant]
  4. DOVONEX [Concomitant]

REACTIONS (1)
  - LUNG NEOPLASM MALIGNANT [None]
